FAERS Safety Report 23821692 (Version 1)
Quarter: 2024Q2

REPORT INFORMATION
  Report Type: Spontaneous
  Country: US (occurrence: US)
  Receive Date: 20240506
  Receipt Date: 20240506
  Transmission Date: 20240716
  Serious: No
  Sender: FDA-Public Use
  Company Number: US-BAYER-2024A064316

PATIENT
  Age: 65 Year
  Sex: Female

DRUGS (19)
  1. CLARITIN [Suspect]
     Active Substance: LORATADINE
  2. AVELOX [Suspect]
     Active Substance: MOXIFLOXACIN HYDROCHLORIDE
  3. ARTHROTEC [Concomitant]
     Active Substance: DICLOFENAC SODIUM\MISOPROSTOL
  4. SULFAMETHOXAZOLE\TRIMETHOPRIM [Concomitant]
     Active Substance: SULFAMETHOXAZOLE\TRIMETHOPRIM
  5. CATAFLAM [Concomitant]
     Active Substance: DICLOFENAC POTASSIUM
  6. CLINORIL [Concomitant]
     Active Substance: SULINDAC
  7. DARVOCET [Concomitant]
     Active Substance: ACETAMINOPHEN\PROPOXYPHENE HYDROCHLORIDE
  8. DURAGESIC [Concomitant]
     Active Substance: FENTANYL
  9. FIORICET [Concomitant]
     Active Substance: ACETAMINOPHEN\BUTALBITAL\CAFFEINE
  10. MECLOMEN [Concomitant]
     Active Substance: MECLOFENAMATE SODIUM
  11. NEURONTIN [Concomitant]
     Active Substance: GABAPENTIN
  12. PAMELOR [Concomitant]
     Active Substance: NORTRIPTYLINE HYDROCHLORIDE
  13. RELAFEN [Concomitant]
     Active Substance: NABUMETONE
  14. ROBAXIN [Concomitant]
     Active Substance: METHOCARBAMOL
  15. SOMA [Concomitant]
     Active Substance: CARISOPRODOL
  16. TEGRETOL [Concomitant]
     Active Substance: CARBAMAZEPINE
  17. ULTRAM [Concomitant]
     Active Substance: TRAMADOL HYDROCHLORIDE
  18. ZANAFLEX [Concomitant]
     Active Substance: TIZANIDINE HYDROCHLORIDE
  19. DHC PLUS [Concomitant]
     Active Substance: ACETAMINOPHEN\CAFFEINE\DIHYDROCODEINE BITARTRATE

REACTIONS (1)
  - Urticaria [None]
